FAERS Safety Report 5404232-5 (Version None)
Quarter: 2007Q3

REPORT INFORMATION
  Report Type: 
  Country: None (occurrence: None)
  Receive Date: 20070802
  Receipt Date: 20070704
  Transmission Date: 20080115
  Serious: Yes (Hospitalization)
  Sender: FDA-Public Use
  Company Number: FR-ROCHE-495507

PATIENT
  Age: 65 Year
  Sex: Male
  Weight: 75 kg

DRUGS (12)
  1. ROCEPHIN [Suspect]
     Indication: BACTERAEMIA
     Dosage: INDICATION REPORTED AS KLEBSIELLA PNEUMONIAE BLOOD INFECTION AND BACTEROIDES FACILIIS BLOOD INFECTI+
     Route: 042
     Dates: start: 20061218, end: 20061221
  2. ROCEPHIN [Suspect]
     Route: 042
     Dates: start: 20061224, end: 20070102
  3. CIPROFLOXACIN HCL [Suspect]
     Indication: BACTERAEMIA
     Dosage: INDICATION REPORTED AS KLEBSIELLA PNEUMONIAE BLOOD INFECTION AND BACTEROIDES FACILIIS BLOOD INFECTI+
     Route: 048
     Dates: start: 20061218, end: 20070102
  4. FLAGYL [Suspect]
     Indication: BACTERAEMIA
     Dosage: INDICATION REPORTED AS KLEBSIELLA PNEUMONIAE BLOOD INFECTION AND BACTEROIDES FACILIIS BLOOD INFECTI+
     Route: 048
     Dates: start: 20061218, end: 20070102
  5. DI-ANTALVIC [Concomitant]
     Route: 048
     Dates: start: 20061227
  6. COLCHIMAX [Concomitant]
     Route: 048
     Dates: start: 20061227
  7. TENORMIN [Concomitant]
  8. CORDARONE [Concomitant]
  9. ALLOPURINOL [Concomitant]
  10. ESIDRIX [Concomitant]
  11. ATACAND [Concomitant]
  12. AUGMENTIN '125' [Concomitant]
     Indication: BACTERAEMIA
     Dosage: INDICATION REPORTED AS KLEBSIELLA PNEUMONIAE BLOOD INFECTION AND BACTEROIDES FACILIIS BLOOD INFECTI+
     Dates: end: 20061218

REACTIONS (1)
  - RENAL FAILURE [None]
